FAERS Safety Report 22171010 (Version 3)
Quarter: 2023Q2

REPORT INFORMATION
  Report Type: Spontaneous
  Country: US (occurrence: US)
  Receive Date: 20230404
  Receipt Date: 20230523
  Transmission Date: 20230722
  Serious: No
  Sender: FDA-Public Use
  Company Number: US-LUPIN PHARMACEUTICALS INC.-2023-02533

PATIENT

DRUGS (3)
  1. SERTRALINE HYDROCHLORIDE [Suspect]
     Active Substance: SERTRALINE HYDROCHLORIDE
     Indication: Product used for unknown indication
     Dosage: 100 MILLIGRAM, BID, RENEWED ON 13-OCT-2022
     Route: 065
  2. SERTRALINE HYDROCHLORIDE [Suspect]
     Active Substance: SERTRALINE HYDROCHLORIDE
     Dosage: 100 MILLIGRAM, BID, RENEWED ON 06-JAN-2023
     Route: 065
  3. BUPROPION HYDROCHLORIDE [Concomitant]
     Active Substance: BUPROPION HYDROCHLORIDE
     Indication: Product used for unknown indication
     Dosage: 150 MILLIGRAM, BID, 150 MG TWO TIMES A DAY
     Route: 065

REACTIONS (2)
  - Nausea [Unknown]
  - Ill-defined disorder [Unknown]
